FAERS Safety Report 10558062 (Version 1)
Quarter: 2014Q4

REPORT INFORMATION
  Report Type: Other
  Country: JP (occurrence: JP)
  Receive Date: 20141031
  Receipt Date: 20141031
  Transmission Date: 20150529
  Serious: Yes (Other)
  Sender: FDA-Public Use
  Company Number: JP-BRISTOL-MYERS SQUIBB COMPANY-21524749

PATIENT
  Age: 41 Year
  Sex: Female

DRUGS (6)
  1. DOXORUBICIN [Suspect]
     Active Substance: DOXORUBICIN
     Indication: OSTEOSARCOMA
  2. ACTINOMYCIN D [Concomitant]
     Active Substance: DACTINOMYCIN
  3. METHOTREXATE [Concomitant]
     Active Substance: METHOTREXATE
     Indication: OSTEOSARCOMA
  4. CISPLATIN. [Concomitant]
     Active Substance: CISPLATIN
  5. VINCRISTINE [Concomitant]
     Active Substance: VINCRISTINE
  6. IFOSFAMIDE. [Suspect]
     Active Substance: IFOSFAMIDE
     Indication: OSTEOSARCOMA
     Route: 042

REACTIONS (3)
  - Breast cancer [Unknown]
  - Papillary thyroid cancer [Unknown]
  - Squamous cell carcinoma of the tongue [Unknown]
